FAERS Safety Report 6238069-4 (Version None)
Quarter: 2009Q2

REPORT INFORMATION
  Report Type: 
  Country: None (occurrence: None)
  Receive Date: 20090622
  Receipt Date: 20090211
  Transmission Date: 20091009
  Serious: Yes (Other)
  Sender: FDA-Public Use
  Company Number: GB-BAYER-200813361BNE

PATIENT
  Age: 43 Year
  Sex: Female
  Weight: 70 kg

DRUGS (7)
  1. CANESTEN COMBI PESSARY AND CREAM [Suspect]
     Indication: CANDIDIASIS
     Route: 061
     Dates: start: 20081124
  2. CANESTEN COMBI PESSARY AND CREAM [Suspect]
     Route: 067
     Dates: start: 20081124
  3. FLUOXETINE HCL [Concomitant]
     Indication: DRUG USE FOR UNKNOWN INDICATION
     Dates: start: 20070101
  4. LEVOTHYROXINE SODIUM [Concomitant]
     Indication: DRUG USE FOR UNKNOWN INDICATION
     Dates: start: 20070101
  5. LANSOPRAZOLE [Concomitant]
     Indication: DRUG USE FOR UNKNOWN INDICATION
     Route: 048
     Dates: start: 20071003, end: 20071030
  6. ANTIBIOTICS (NOS) [Concomitant]
     Indication: DRUG USE FOR UNKNOWN INDICATION
  7. FLUCONAZOLE [Concomitant]
     Indication: CANDIDIASIS
     Route: 048

REACTIONS (1)
  - VAGINAL HAEMORRHAGE [None]
